FAERS Safety Report 16839901 (Version 2)
Quarter: 2019Q4

REPORT INFORMATION
  Report Type: Spontaneous
  Country: US (occurrence: US)
  Receive Date: 20190923
  Receipt Date: 20191015
  Transmission Date: 20200122
  Serious: No
  Sender: FDA-Public Use
  Company Number: US-AMGEN-USASP2019154760

PATIENT
  Age: 74 Year
  Sex: Female

DRUGS (1)
  1. AIMOVIG [Suspect]
     Active Substance: ERENUMAB-AOOE
     Indication: MIGRAINE
     Dosage: 140 MILLIGRAM, QMO
     Route: 065
     Dates: start: 2018

REACTIONS (5)
  - Injury associated with device [Unknown]
  - Wrong technique in product usage process [Unknown]
  - Fatigue [Unknown]
  - Injection site bruising [Recovering/Resolving]
  - Accidental exposure to product [Unknown]

NARRATIVE: CASE EVENT DATE: 20190915
